FAERS Safety Report 7549132-X (Version None)
Quarter: 2011Q2

REPORT INFORMATION
  Report Type: 
  Country: None (occurrence: None)
  Receive Date: 20110615
  Receipt Date: 20110601
  Transmission Date: 20111010
  Serious: Yes (Other)
  Sender: FDA-Public Use
  Company Number: PHHY2011US40982

PATIENT
  Sex: Female
  Weight: 67 kg

DRUGS (4)
  1. RECLAST [Suspect]
     Dosage: 5 MG/100ML/YEAR
     Route: 042
     Dates: start: 20101222
  2. CALCIUM CARBONATE [Concomitant]
     Dosage: 500 MG
  3. OXYCODONE HCL [Concomitant]
  4. VITAMIN D [Concomitant]
     Dosage: 500 MG

REACTIONS (8)
  - PAIN [None]
  - PAIN IN JAW [None]
  - BONE DISORDER [None]
  - BONE FORMATION INCREASED [None]
  - EXPOSED BONE IN JAW [None]
  - HEADACHE [None]
  - GINGIVAL BLISTER [None]
  - TOOTHACHE [None]
